FAERS Safety Report 15776887 (Version 2)
Quarter: 2019Q2

REPORT INFORMATION
  Report Type: Spontaneous
  Country: US (occurrence: US)
  Receive Date: 20181231
  Receipt Date: 20190510
  Transmission Date: 20190711
  Serious: No
  Sender: FDA-Public Use
  Company Number: US-PFIZER INC-2018531736

PATIENT
  Age: 78 Year
  Sex: Female
  Weight: 61 kg

DRUGS (2)
  1. IBRANCE [Suspect]
     Active Substance: PALBOCICLIB
     Dosage: 300 MG, CYCLIC (ONCE A DAY FOR 3 WEEKS THEN OFF A WEEK )
  2. IBRANCE [Suspect]
     Active Substance: PALBOCICLIB
     Indication: NEOPLASM MALIGNANT
     Dosage: 300 MG, CYCLIC (ONCE A DAY FOR 3 WEEKS THEN OFF A WEEK )

REACTIONS (2)
  - Oral pain [Unknown]
  - Alopecia [Recovered/Resolved]
